FAERS Safety Report 19359342 (Version 1)
Quarter: 2021Q2

REPORT INFORMATION
  Report Type: Spontaneous
  Country: CN (occurrence: CN)
  Receive Date: 20210602
  Receipt Date: 20210602
  Transmission Date: 20210717
  Serious: Yes (Other)
  Sender: FDA-Public Use
  Company Number: CN-ROCHE-2836188

PATIENT
  Age: 37 Year
  Sex: Female

DRUGS (1)
  1. HERCEPTIN [Suspect]
     Active Substance: TRASTUZUMAB
     Indication: BREAST CANCER
     Dosage: CHEMOTHERAPY PERIOD: ONCE PER 2 WEEKS, AFTER CHEMOTHERAPY: ONCE PER 3 WEEKS
     Route: 065

REACTIONS (5)
  - Asthenia [Unknown]
  - Product storage error [Unknown]
  - Fatigue [Unknown]
  - Intercepted medication error [Unknown]
  - Liver injury [Unknown]
